FAERS Safety Report 8678995 (Version 2)
Quarter: 2013Q4

REPORT INFORMATION
  Report Type: Report from Study
  Country: US (occurrence: US)
  Receive Date: 20120724
  Receipt Date: 20131101
  Transmission Date: 20140711
  Serious: Yes (Life-Threatening, Hospitalization)
  Sender: FDA-Public Use
  Company Number: US-MSD-1207USA003620

PATIENT
  Age: 68 Year
  Sex: Female
  Weight: 68.9 kg

DRUGS (6)
  1. VORINOSTAT [Suspect]
     Indication: GLIOBLASTOMA MULTIFORME
     Dosage: DAYS 1-5, WEEKLY
     Dates: start: 20120521, end: 20120525
  2. VORINOSTAT [Suspect]
     Dosage: DAYS 1-5, WEEKLY
     Dates: start: 20120528, end: 20120601
  3. VORINOSTAT [Suspect]
     Dosage: DAYS 1-5, WEEKLY
     Dates: start: 20120604, end: 20120608
  4. VORINOSTAT [Suspect]
     Dosage: DAYS 1-5, WEEKLY
     Dates: start: 20120611, end: 20120612
  5. TEMOZOLOMIDE [Suspect]
     Indication: GLIOBLASTOMA MULTIFORME
     Dosage: 75 MG/M2, QD
     Route: 048
     Dates: start: 20120521, end: 20120612
  6. VANCOMYCIN [Suspect]

REACTIONS (3)
  - Febrile neutropenia [Unknown]
  - Anaemia [Unknown]
  - Diarrhoea [Unknown]
